FAERS Safety Report 5661500-X (Version None)
Quarter: 2008Q1

REPORT INFORMATION
  Report Type: 
  Country: None (occurrence: None)
  Receive Date: 20080312
  Receipt Date: 20080229
  Transmission Date: 20080703
  Serious: Yes (Disabling, Other)
  Sender: FDA-Public Use
  Company Number: FR-ROCHE-551367

PATIENT
  Age: 32 Year
  Sex: Female
  Weight: 53 kg

DRUGS (1)
  1. ROACCUTANE [Suspect]
     Indication: DRUG USE FOR UNKNOWN INDICATION
     Route: 065

REACTIONS (3)
  - DEPRESSION [None]
  - DRY EYE [None]
  - EYE DISORDER [None]
